FAERS Safety Report 7158171-2 (Version None)
Quarter: 2010Q4

REPORT INFORMATION
  Report Type: 
  Country: None (occurrence: None)
  Receive Date: 20101214
  Receipt Date: 20100505
  Transmission Date: 20110411
  Serious: No
  Sender: FDA-Public Use
  Company Number: US-ASTRAZENECA-2010SE20435

PATIENT
  Sex: Male
  Weight: 86.2 kg

DRUGS (2)
  1. CRESTOR [Suspect]
     Indication: BLOOD CHOLESTEROL
     Route: 048
     Dates: start: 20100301, end: 20100401
  2. CRESTOR [Suspect]
     Route: 048
     Dates: start: 20100401

REACTIONS (3)
  - ABDOMINAL PAIN UPPER [None]
  - HYPERCHOLESTEROLAEMIA [None]
  - NAUSEA [None]
